FAERS Safety Report 11726938 (Version 1)
Quarter: 2015Q4

REPORT INFORMATION
  Report Type: Spontaneous
  Country: DE (occurrence: DE)
  Receive Date: 20151112
  Receipt Date: 20151112
  Transmission Date: 20160304
  Serious: Yes (Life-Threatening)
  Sender: FDA-Public Use
  Company Number: DE-ACTAVIS-2015-24098

PATIENT
  Age: 64 Year
  Sex: Male

DRUGS (5)
  1. ASPIRIN. [Concomitant]
     Active Substance: ASPIRIN
     Indication: CORONARY ARTERY DISEASE
     Dosage: UNK, DAILY
     Route: 048
  2. PYLERA [Suspect]
     Active Substance: BISMUTH SUBCITRATE POTASSIUM\METRONIDAZOLE\TETRACYCLINE HYDROCHLORIDE
     Indication: HELICOBACTER INFECTION
     Dosage: 4 DF DOSAGE FORM EVERY 4 DAYS
     Route: 048
     Dates: start: 20151021
  3. IVABRADINE [Concomitant]
     Active Substance: IVABRADINE
     Indication: TACHYCARDIA
     Route: 048
  4. VELMETIA [Concomitant]
     Active Substance: METFORMIN\SITAGLIPTIN
     Indication: DIABETES MELLITUS
  5. LOSARTAN. [Concomitant]
     Active Substance: LOSARTAN
     Indication: HYPERTENSION
     Dosage: UNK
     Route: 048

REACTIONS (4)
  - Myocardial infarction [Unknown]
  - Pemphigoid [Unknown]
  - Angina pectoris [Unknown]
  - Erythema [Unknown]

NARRATIVE: CASE EVENT DATE: 20151021
